FAERS Safety Report 5093319-5 (Version None)
Quarter: 2006Q3

REPORT INFORMATION
  Report Type: 
  Country: None (occurrence: None)
  Receive Date: 20060828
  Receipt Date: 20060816
  Transmission Date: 20061208
  Serious: Yes (Disabling, Other)
  Sender: FDA-Public Use
  Company Number: 2006100394

PATIENT
  Age: 49 Year
  Sex: Male
  Weight: 96 kg

DRUGS (5)
  1. LIPITOR [Suspect]
     Indication: DRUG USE FOR UNKNOWN INDICATION
     Dosage: 10 MG, ORAL
     Route: 048
  2. LANTUS [Concomitant]
  3. HUMALOG [Concomitant]
  4. LOSARTAN POTASSIUM [Concomitant]
  5. ASPIRIN [Concomitant]

REACTIONS (3)
  - FATIGUE [None]
  - MOVEMENT DISORDER [None]
  - MUSCLE SPASMS [None]
